FAERS Safety Report 20437162 (Version 4)
Quarter: 2022Q3

REPORT INFORMATION
  Report Type: Spontaneous
  Country: JP (occurrence: JP)
  Receive Date: 20220207
  Receipt Date: 20220715
  Transmission Date: 20221027
  Serious: No
  Sender: FDA-Public Use
  Company Number: JP-GLAXOSMITHKLINE-JP2022JPN018351

PATIENT

DRUGS (5)
  1. SOTROVIMAB [Suspect]
     Active Substance: SOTROVIMAB
     Indication: COVID-19
     Dosage: 500 MG/DAY
     Route: 042
     Dates: start: 20220129, end: 20220129
  2. DEXTROMETHORPHAN HYDROBROMIDE [Concomitant]
     Active Substance: DEXTROMETHORPHAN HYDROBROMIDE
     Indication: Cough
     Dosage: 45 MG/DAY
     Route: 048
     Dates: start: 20220129, end: 20220202
  3. CLARITIN [Concomitant]
     Active Substance: LORATADINE
     Indication: Allergy prophylaxis
     Dosage: 10 MG/DAY
     Route: 048
     Dates: start: 20220129, end: 20220130
  4. CLARITIN [Concomitant]
     Active Substance: LORATADINE
     Indication: Prophylaxis
  5. CALONAL [Concomitant]
     Active Substance: ACETAMINOPHEN
     Indication: Allergy prophylaxis
     Dosage: 1500 MG/DAY
     Route: 048
     Dates: start: 20220129, end: 20220130

REACTIONS (1)
  - Exposure during pregnancy [Unknown]
